FAERS Safety Report 16557243 (Version 2)
Quarter: 2019Q3

REPORT INFORMATION
  Report Type: Report from Study
  Country: CN (occurrence: CN)
  Receive Date: 20190711
  Receipt Date: 20190814
  Transmission Date: 20191004
  Serious: Yes (Other)
  Sender: FDA-Public Use
  Company Number: CN-ROCHE-2351083

PATIENT
  Age: 33 Year
  Sex: Male

DRUGS (4)
  1. LECITHIN [Concomitant]
     Active Substance: LECITHIN
     Indication: MACULAR OEDEMA
  2. LECITHIN [Concomitant]
     Active Substance: LECITHIN
     Indication: RETINAL VEIN OCCLUSION
     Dosage: 2 DF, UNK
     Route: 048
     Dates: start: 20190517
  3. RANIBIZUMAB. [Suspect]
     Active Substance: RANIBIZUMAB
     Indication: RETINAL VEIN OCCLUSION
     Route: 031
     Dates: start: 20190409
  4. RANIBIZUMAB. [Suspect]
     Active Substance: RANIBIZUMAB
     Indication: MACULAR OEDEMA

REACTIONS (1)
  - Vitreous haemorrhage [Recovered/Resolved with Sequelae]

NARRATIVE: CASE EVENT DATE: 20190409
